FAERS Safety Report 11896999 (Version 1)
Quarter: 2016Q1

REPORT INFORMATION
  Report Type: Spontaneous
  Country: GB (occurrence: GB)
  Receive Date: 20160107
  Receipt Date: 20160107
  Transmission Date: 20160526
  Serious: Yes (Hospitalization)
  Sender: FDA-Public Use
  Company Number: PHHY2015GB171334

PATIENT
  Age: 53 Year
  Sex: Male

DRUGS (6)
  1. CLOZAPINE. [Suspect]
     Active Substance: CLOZAPINE
     Dosage: 450 MG, QD
     Route: 065
  2. CLOZAPINE. [Suspect]
     Active Substance: CLOZAPINE
     Indication: SCHIZOPHRENIA
     Dosage: 450 MG, UNK (100 MG EVERY MORNING AND 350 MG EVERY NIGHT)
     Route: 065
  3. CLOZAPINE. [Suspect]
     Active Substance: CLOZAPINE
     Dosage: 125 MG, UNK (50 MG EVERY MORNING AND 75 MG EVERY NIGHT)
     Route: 065
  4. SERTRALINE [Concomitant]
     Active Substance: SERTRALINE HYDROCHLORIDE
     Indication: SCHIZOPHRENIA
     Route: 065
  5. ARIPIPRAZOLE. [Concomitant]
     Active Substance: ARIPIPRAZOLE
     Indication: SCHIZOPHRENIA
     Route: 030
  6. LORAZEPAM. [Concomitant]
     Active Substance: LORAZEPAM
     Indication: SCHIZOPHRENIA
     Dosage: 6 MG, UNK
     Route: 065

REACTIONS (14)
  - Rash [Unknown]
  - Catatonia [Recovering/Resolving]
  - Abnormal behaviour [Recovering/Resolving]
  - Pyrexia [Unknown]
  - Weight decreased [Recovering/Resolving]
  - Hypophagia [Recovering/Resolving]
  - Speech disorder [Recovering/Resolving]
  - Muscle twitching [Recovering/Resolving]
  - Staring [Recovering/Resolving]
  - Grimacing [Recovering/Resolving]
  - Mental disorder [Recovering/Resolving]
  - Psychomotor retardation [Recovering/Resolving]
  - Posturing [Recovering/Resolving]
  - Negativism [Recovering/Resolving]
